FAERS Safety Report 21711745 (Version 5)
Quarter: 2023Q2

REPORT INFORMATION
  Report Type: Spontaneous
  Country: US (occurrence: US)
  Receive Date: 20221212
  Receipt Date: 20230606
  Transmission Date: 20230722
  Serious: No
  Sender: FDA-Public Use
  Company Number: US-002147023-NVSC2022US287129

PATIENT
  Sex: Female

DRUGS (3)
  1. MEKINIST [Suspect]
     Active Substance: TRAMETINIB DIMETHYL SULFOXIDE
     Indication: Ovarian cancer
     Dosage: 2 MG, QD
     Route: 048
     Dates: start: 202207
  2. MEKINIST [Suspect]
     Active Substance: TRAMETINIB DIMETHYL SULFOXIDE
     Dosage: 1.5 MG, QD (STRENGTH- 0.5 MG)
     Route: 065
  3. MEKINIST [Suspect]
     Active Substance: TRAMETINIB DIMETHYL SULFOXIDE
     Dosage: 1.5 MG, QD  (STRENGTH- 1.5 MG)
     Route: 048
     Dates: start: 202303

REACTIONS (3)
  - Rash [Unknown]
  - Visual impairment [Unknown]
  - Product use in unapproved indication [Unknown]
